FAERS Safety Report 24726149 (Version 2)
Quarter: 2025Q1

REPORT INFORMATION
  Report Type: Spontaneous
  Country: US (occurrence: US)
  Receive Date: 20241212
  Receipt Date: 20250317
  Transmission Date: 20250409
  Serious: No
  Sender: BIOGEN
  Company Number: US-BIOGEN-2024BI01293266

PATIENT
  Sex: Female

DRUGS (1)
  1. PLEGRIDY [Suspect]
     Active Substance: PEGINTERFERON BETA-1A
     Indication: Multiple sclerosis
     Route: 050
     Dates: start: 20180522

REACTIONS (4)
  - Device difficult to use [Unknown]
  - Drug delivery system malfunction [Unknown]
  - Drug dose omission by device [Unknown]
  - Multiple sclerosis relapse [Not Recovered/Not Resolved]
